FAERS Safety Report 8850067 (Version 2)
Quarter: 2012Q4

REPORT INFORMATION
  Report Type: 
  Country: BR (occurrence: BR)
  Receive Date: 20121019
  Receipt Date: 20121109
  Transmission Date: 20130627
  Serious: Yes (Other)
  Sender: FDA-Public Use
  Company Number: BR-PFIZER INC-2012257489

PATIENT
  Age: 24 Year
  Sex: Male

DRUGS (1)
  1. XALATAN [Suspect]
     Indication: GLAUCOMA
     Dosage: one drop in right eye twice a day (1.5 ug, 2x/day)
     Route: 047
     Dates: start: 20120828, end: 20120924

REACTIONS (2)
  - Intraocular pressure increased [Unknown]
  - Off label use [Recovered/Resolved]
